FAERS Safety Report 8453812-1 (Version None)
Quarter: 2012Q2

REPORT INFORMATION
  Report Type: 
  Country: None (occurrence: None)
  Receive Date: 20120323
  Receipt Date: 20111101
  Transmission Date: 20120825
  Serious: Yes (Other)
  Sender: FDA-Public Use
  Company Number: 163-21880-11110424

PATIENT
  Age: 67 Year
  Sex: Male

DRUGS (9)
  1. VALACYCLOVIR (HCL (VALACICLOVIR HYDROCHLORIDE) [Concomitant]
  2. VIREAD [Concomitant]
  3. OMEPRAZOLE [Concomitant]
  4. REVLIMID [Suspect]
     Indication: MULTIPLE MYELOMA
     Dosage: 20 MG, DAILY X 21 DAYS, PO
     Route: 048
     Dates: start: 20110831, end: 20110101
  5. LEVETIRACETAM [Concomitant]
  6. ASPIRIN [Concomitant]
  7. DEXAMETHASONE [Concomitant]
  8. MEGESTROL ACETATE [Concomitant]
  9. COMBIVIR [Concomitant]

REACTIONS (1)
  - FULL BLOOD COUNT DECREASED [None]
